FAERS Safety Report 4784877-6 (Version None)
Quarter: 2005Q3

REPORT INFORMATION
  Report Type: 
  Country: None (occurrence: None)
  Receive Date: 20050928
  Receipt Date: 20050913
  Transmission Date: 20060218
  Serious: Yes (Hospitalization)
  Sender: FDA-Public Use
  Company Number: 217808

PATIENT
  Age: 62 Year
  Sex: Male

DRUGS (14)
  1. AVASTIN [Suspect]
     Indication: OESOPHAGEAL CARCINOMA
     Dosage: 5 MG/KG, Q2W, INTRAVENOUS
     Route: 042
     Dates: start: 20050427, end: 20050817
  2. DOCETAXEL (DOCETAXEL) [Suspect]
     Indication: OESOPHAGEAL CARCINOMA
     Dosage: 33 MG/M2, DAYS1,8,15, INTRAVENOUS
     Route: 042
     Dates: start: 20050427, end: 20050824
  3. DECADRON [Concomitant]
  4. COMPAZINE (PROCHLOPRERAZINE) [Concomitant]
  5. LIPITOR [Concomitant]
  6. LISINOPRIL [Concomitant]
  7. MAGNESIUM OXIDE (MAGNESIUM OXIDE) [Concomitant]
  8. OXANDRIN [Concomitant]
  9. PREDNISONE [Concomitant]
  10. ZANTAC [Concomitant]
  11. TYLENOL (ACETAMINOPHEN) [Concomitant]
  12. CLOTRIMAZOLE (CLOTRIMAZOLE) [Concomitant]
  13. PEPCID [Concomitant]
  14. NYSTATIN [Concomitant]

REACTIONS (10)
  - ABDOMINAL DISCOMFORT [None]
  - DECREASED APPETITE [None]
  - ERYTHEMA [None]
  - HAEMATOCRIT DECREASED [None]
  - HAEMOGLOBIN DECREASED [None]
  - NAIL DISCOLOURATION [None]
  - NAIL INFECTION [None]
  - PURULENT DISCHARGE [None]
  - WEIGHT DECREASED [None]
  - WHITE BLOOD CELL COUNT DECREASED [None]
